FAERS Safety Report 6769429-0 (Version None)
Quarter: 2010Q2

REPORT INFORMATION
  Report Type: 
  Country: None (occurrence: None)
  Receive Date: 20100615
  Receipt Date: 20100604
  Transmission Date: 20101027
  Serious: Yes (Other)
  Sender: FDA-Public Use
  Company Number: JP-NOVOPROD-309769

PATIENT
  Sex: Female

DRUGS (1)
  1. NOVORAPID CHU PENFILL [Suspect]
     Indication: TYPE 1 DIABETES MELLITUS

REACTIONS (2)
  - ABORTION [None]
  - DRUG EXPOSURE DURING PREGNANCY [None]
